FAERS Safety Report 6817102-2 (Version None)
Quarter: 2010Q3

REPORT INFORMATION
  Report Type: 
  Country: None (occurrence: None)
  Receive Date: 20100706
  Receipt Date: 20100628
  Transmission Date: 20110219
  Serious: Yes (Hospitalization)
  Sender: FDA-Public Use
  Company Number: DE-ROCHE-713257

PATIENT
  Sex: Female
  Weight: 99 kg

DRUGS (6)
  1. TOCILIZUMAB [Suspect]
     Indication: RHEUMATOID ARTHRITIS
     Route: 065
  2. PREDNISOLON [Suspect]
     Indication: RHEUMATOID ARTHRITIS
     Route: 048
  3. TORSEMIDE [Suspect]
     Route: 048
  4. ARCOXIA [Suspect]
     Indication: RHEUMATOID ARTHRITIS
     Route: 048
  5. VITAMIN D [Suspect]
     Indication: OSTEOPOROSIS PROPHYLAXIS
     Route: 065
  6. CALCIUM CARBONATE [Suspect]
     Indication: OSTEOPOROSIS PROPHYLAXIS
     Route: 065

REACTIONS (1)
  - DEEP VEIN THROMBOSIS [None]
